FAERS Safety Report 6416989-5 (Version None)
Quarter: 2009Q4

REPORT INFORMATION
  Report Type: 
  Country: None (occurrence: None)
  Receive Date: 20091027
  Receipt Date: 20090904
  Transmission Date: 20100525
  Serious: No
  Sender: FDA-Public Use
  Company Number: US-ALLERGAN-0912431US

PATIENT
  Age: 80 Year
  Sex: Male

DRUGS (4)
  1. ALPHAGAN P [Suspect]
     Indication: INTRAOCULAR PRESSURE INCREASED
     Dosage: 1 GTT, BID
     Route: 047
     Dates: start: 20090824
  2. ALPHAGAN P [Suspect]
     Dosage: 1 GTT, UNK
     Route: 047
     Dates: start: 20090210
  3. LUMIGAN [Concomitant]
  4. DORZOLAMIDE HCL AND TIMOLOL MALEATE [Concomitant]

REACTIONS (3)
  - EYE IRRITATION [None]
  - FOREIGN BODY SENSATION IN EYES [None]
  - OCULAR HYPERAEMIA [None]
